FAERS Safety Report 7627160-3 (Version None)
Quarter: 2011Q3

REPORT INFORMATION
  Report Type: 
  Country: None (occurrence: None)
  Receive Date: 20110721
  Receipt Date: 20101210
  Transmission Date: 20111222
  Serious: Yes (Death, Other)
  Sender: FDA-Public Use
  Company Number: US-BAYER-201015580NA

PATIENT
  Age: 72 Year
  Sex: Female

DRUGS (1)
  1. TRASYLOL [Suspect]
     Indication: CARDIAC OPERATION
     Dates: start: 20001124

REACTIONS (7)
  - MYOCARDIAL INFARCTION [None]
  - RENAL FAILURE [None]
  - DEATH [None]
  - CEREBROVASCULAR ACCIDENT [None]
  - RENAL FAILURE ACUTE [None]
  - INJURY [None]
  - PAIN [None]
